FAERS Safety Report 7510510-6 (Version None)
Quarter: 2011Q2

REPORT INFORMATION
  Report Type: 
  Country: None (occurrence: None)
  Receive Date: 20110529
  Receipt Date: 20110519
  Transmission Date: 20111010
  Serious: Yes (Death, Hospitalization)
  Sender: FDA-Public Use
  Company Number: US-BRISTOL-MYERS SQUIBB COMPANY-15668189

PATIENT
  Age: 52 Year
  Sex: Female
  Weight: 59 kg

DRUGS (6)
  1. INSULIN [Concomitant]
  2. PEMETREXED DISODIUM [Suspect]
     Indication: NON-SMALL CELL LUNG CANCER
     Dosage: LAST DOSE:22FEB11,DAY 1 AND 3
     Route: 042
     Dates: start: 20101123
  3. CARBOPLATIN [Suspect]
     Indication: NON-SMALL CELL LUNG CANCER
     Dosage: LAST DOSE:22FEB11,DAY 1 AND 3,1DF=AUC=6
     Route: 042
     Dates: start: 20101123
  4. DEXAMETHASONE [Concomitant]
  5. FOLIC ACID [Concomitant]
  6. VITAMIN B-12 [Concomitant]

REACTIONS (7)
  - RESPIRATORY FAILURE [None]
  - DEHYDRATION [None]
  - ASPARTATE AMINOTRANSFERASE INCREASED [None]
  - MENTAL STATUS CHANGES [None]
  - CONFUSIONAL STATE [None]
  - THROMBOCYTOPENIA [None]
  - NEUTROPHIL COUNT [None]
